FAERS Safety Report 19643428 (Version 1)
Quarter: 2021Q3

REPORT INFORMATION
  Report Type: Spontaneous
  Country: FR (occurrence: FR)
  Receive Date: 20210731
  Receipt Date: 20210731
  Transmission Date: 20211014
  Serious: Yes (Hospitalization)
  Sender: FDA-Public Use
  Company Number: NVSC2021FR167802

PATIENT
  Age: 68 Year
  Sex: Female
  Weight: 60 kg

DRUGS (1)
  1. ACLASTA [Suspect]
     Active Substance: ZOLEDRONIC ACID
     Indication: OSTEOPOROSIS
     Dosage: 5 MG
     Route: 042
     Dates: start: 20210511, end: 20210511

REACTIONS (5)
  - Inflammation [Recovered/Resolved]
  - General physical health deterioration [Not Recovered/Not Resolved]
  - Chondrocalcinosis [Not Recovered/Not Resolved]
  - Pyrexia [Recovered/Resolved]
  - Arthritis [Recovered/Resolved]

NARRATIVE: CASE EVENT DATE: 20210516
